FAERS Safety Report 8164554-4 (Version None)
Quarter: 2012Q1

REPORT INFORMATION
  Report Type: 
  Country: None (occurrence: None)
  Receive Date: 20120226
  Receipt Date: 20120215
  Transmission Date: 20120608
  Serious: Yes (Hospitalization)
  Sender: FDA-Public Use
  Company Number: SE-BRISTOL-MYERS SQUIBB COMPANY-15015589

PATIENT
  Age: 72 Year
  Sex: Female

DRUGS (1)
  1. ORENCIA [Suspect]
     Indication: RHEUMATOID ARTHRITIS
     Dosage: LAST DOSE OF ORENCIA ON 15 DEC 2009
     Route: 042
     Dates: start: 20090623, end: 20100112

REACTIONS (3)
  - PLEURAL EFFUSION [None]
  - SEPSIS [None]
  - INFECTIOUS PLEURAL EFFUSION [None]
